FAERS Safety Report 10710598 (Version 3)
Quarter: 2015Q1

REPORT INFORMATION
  Report Type: Spontaneous
  Country: US (occurrence: US)
  Receive Date: 20150114
  Receipt Date: 20150312
  Transmission Date: 20150721
  Serious: Yes (Other)
  Sender: FDA-Public Use
  Company Number: US-PFIZER INC-2015008294

PATIENT
  Age: 62 Year
  Sex: Female

DRUGS (2)
  1. ADVIL [Suspect]
     Active Substance: IBUPROFEN
     Indication: PAIN IN EXTREMITY
     Dosage: 2 CAPS (200 MG), EVERY 6 HOURS
     Dates: start: 20141125, end: 20141126
  2. ADVIL [Suspect]
     Active Substance: IBUPROFEN
     Indication: BACK PAIN

REACTIONS (6)
  - Cough [Recovered/Resolved]
  - Product size issue [Recovered/Resolved]
  - Intentional product misuse [Recovered/Resolved]
  - Choking [Recovered/Resolved]
  - Fear of death [Recovered/Resolved]
  - Dysphagia [Recovered/Resolved]

NARRATIVE: CASE EVENT DATE: 20141126
